FAERS Safety Report 12649654 (Version 1)
Quarter: 2016Q3

REPORT INFORMATION
  Report Type: Report from Study
  Country: AU (occurrence: AU)
  Receive Date: 20160812
  Receipt Date: 20160812
  Transmission Date: 20161109
  Serious: Yes (Other)
  Sender: FDA-Public Use
  Company Number: AU-REGENERON PHARMACEUTICALS, INC.-2016-20337

PATIENT

DRUGS (1)
  1. EYLEA [Suspect]
     Active Substance: AFLIBERCEPT
     Indication: DIABETIC RETINAL OEDEMA
     Dosage: 2 MG, Q4WK
     Route: 031
     Dates: start: 201503

REACTIONS (3)
  - Diabetes mellitus [Unknown]
  - Haemodialysis [Unknown]
  - Product use issue [Unknown]

NARRATIVE: CASE EVENT DATE: 2015
